FAERS Safety Report 7821060-1 (Version None)
Quarter: 2011Q4

REPORT INFORMATION
  Report Type: 
  Country: None (occurrence: None)
  Receive Date: 20111018
  Receipt Date: 20111012
  Transmission Date: 20120403
  Serious: No
  Sender: FDA-Public Use
  Company Number: US-PFIZER INC-2011244601

PATIENT
  Age: 66 Year
  Sex: Male
  Weight: 125 kg

DRUGS (6)
  1. TREPROSTINIL SODIUM [Suspect]
     Dosage: UNK
     Dates: start: 20110915
  2. LETAIRIS [Suspect]
     Dosage: UNK
  3. REVATIO [Concomitant]
     Dosage: UNK
  4. VIAGRA [Suspect]
     Dosage: UNK
     Dates: start: 20110915
  5. TREPROSTINIL SODIUM [Suspect]
     Indication: PULMONARY ARTERIAL HYPERTENSION
     Dosage: 18 UG, 4X/DAY
     Route: 055
     Dates: start: 20110912
  6. COUMADIN [Concomitant]
     Dosage: UNK

REACTIONS (3)
  - HYPOTENSION [None]
  - DIZZINESS [None]
  - OROPHARYNGEAL PAIN [None]
